FAERS Safety Report 21201355 (Version 2)
Quarter: 2022Q3

REPORT INFORMATION
  Report Type: Spontaneous
  Country: FR (occurrence: FR)
  Receive Date: 20220811
  Receipt Date: 20220826
  Transmission Date: 20221027
  Serious: Yes (Hospitalization)
  Sender: FDA-Public Use
  Company Number: FR-TEVA-2022-FR-2062528

PATIENT
  Age: 67 Year
  Sex: Female

DRUGS (12)
  1. VINCRISTINE [Suspect]
     Active Substance: VINCRISTINE
     Indication: Follicular lymphoma stage IV
     Dosage: RECEIVED 6 CYCLES; AS PART OF R-CHOP REGIMEN
     Route: 065
  2. RITUXIMAB [Suspect]
     Active Substance: RITUXIMAB
     Indication: Follicular lymphoma stage IV
     Dosage: AS PART OF R-CHOP; R-DHAC REGIMEN AND ALONG WITH LENALIDOMIDE
     Route: 065
  3. CYCLOPHOSPHAMIDE [Suspect]
     Active Substance: CYCLOPHOSPHAMIDE
     Indication: Follicular lymphoma stage IV
     Dosage: RECEIVED 6 CYCLES; PART OF R-CHOP
     Route: 065
  4. PREDNISONE [Suspect]
     Active Substance: PREDNISONE
     Indication: Follicular lymphoma stage IV
     Dosage: RECEIVED 6 CYCLES; AS PART OF R-CHOP REGIMEN
     Route: 065
  5. DEXAMETHASONE [Suspect]
     Active Substance: DEXAMETHASONE
     Indication: Follicular lymphoma stage IV
     Dosage: RECEIVED FOUR CYCLES; PART OF R-DHAC REGIMEN
     Route: 065
  6. DOXORUBICIN [Concomitant]
     Active Substance: DOXORUBICIN
     Indication: Follicular lymphoma stage IV
     Dosage: RECEIVED 6 CYCLES; PART OF R-CHOP
     Route: 065
  7. CARBOPLATIN [Concomitant]
     Active Substance: CARBOPLATIN
     Indication: Follicular lymphoma stage IV
     Dosage: RECEIVED 4 CYCLES; AS PART OF R-DHAC REGIMEN
     Route: 065
  8. OBINUTUZUMAB [Concomitant]
     Active Substance: OBINUTUZUMAB
     Indication: Follicular lymphoma stage IV
     Dosage: RECEIVED 6CYCLES
     Route: 065
  9. BENDAMUSTINE [Concomitant]
     Active Substance: BENDAMUSTINE
     Indication: Follicular lymphoma stage IV
     Dosage: RECEIVED 6 CYCLES
     Route: 065
  10. REVLIMID [Concomitant]
     Active Substance: LENALIDOMIDE
     Indication: Follicular lymphoma stage IV
     Dosage: RECEIVED 5 CYCLES
     Route: 065
  11. IDELALISIB [Concomitant]
     Active Substance: IDELALISIB
     Indication: Follicular lymphoma stage IV
     Route: 065
  12. CYTARABINE [Concomitant]
     Active Substance: CYTARABINE
     Indication: Follicular lymphoma stage IV
     Dosage: RECEIVED 4 CYCLES; AS PART OF R-DHAC REGIMEN
     Route: 065

REACTIONS (1)
  - Borrelia infection [Recovering/Resolving]
